FAERS Safety Report 12006458 (Version 3)
Quarter: 2020Q1

REPORT INFORMATION
  Report Type: Report from Study
  Country: CA (occurrence: CA)
  Receive Date: 20160204
  Receipt Date: 20200121
  Transmission Date: 20200409
  Serious: Yes (Hospitalization, Other)
  Sender: FDA-Public Use
  Company Number: CA-TAKEDA-2016TUS001211

PATIENT
  Age: 34 Year
  Sex: Female

DRUGS (8)
  1. VEDOLIZUMAB [Suspect]
     Active Substance: VEDOLIZUMAB
     Indication: CROHN^S DISEASE
     Dosage: 300 MILLIGRAM
     Route: 042
     Dates: start: 20150808
  2. VEDOLIZUMAB [Suspect]
     Active Substance: VEDOLIZUMAB
     Dosage: 250 MILLIGRAM
     Route: 042
     Dates: start: 20160126
  3. PROMETHAZINE [Concomitant]
     Active Substance: PROMETHAZINE HYDROCHLORIDE
     Indication: NAUSEA
     Dosage: 25 MILLIGRAM
  4. GABAPENTIN. [Concomitant]
     Active Substance: GABAPENTIN
     Indication: ARTHRITIS
     Dosage: 300 MILLIGRAM, BID
  5. HEPARIN [Suspect]
     Active Substance: HEPARIN SODIUM
     Indication: PRODUCT USED FOR UNKNOWN INDICATION
     Dosage: UNK
     Route: 042
  6. TRILAFON [Concomitant]
     Active Substance: PERPHENAZINE
     Dosage: 8 MILLIGRAM
  7. BACLOFEN. [Concomitant]
     Active Substance: BACLOFEN
     Dosage: 20 MILLIGRAM, QID
  8. PERPHENAZINE. [Concomitant]
     Active Substance: PERPHENAZINE
     Dosage: 8 MILLIGRAM

REACTIONS (11)
  - Road traffic accident [Recovered/Resolved]
  - Insomnia [Recovering/Resolving]
  - Disturbance in attention [Recovered/Resolved]
  - Hallucination [Recovered/Resolved]
  - Mental impairment [Recovered/Resolved]
  - Confusional state [Recovered/Resolved]
  - Pulmonary embolism [Recovered/Resolved]
  - Cerebral haemorrhage [Recovered/Resolved]
  - Facial paralysis [Recovered/Resolved]
  - Multiple fractures [Recovered/Resolved]
  - Off label use [Unknown]

NARRATIVE: CASE EVENT DATE: 20151229
